FAERS Safety Report 5413457-4 (Version None)
Quarter: 2007Q3

REPORT INFORMATION
  Report Type: 
  Country: None (occurrence: None)
  Receive Date: 20070809
  Receipt Date: 20070809
  Transmission Date: 20080115
  Serious: Yes (Life-Threatening, Hospitalization, Other)
  Sender: FDA-Public Use
  Company Number: None

PATIENT
  Age: 45 Year
  Sex: Male
  Weight: 81.6475 kg

DRUGS (2)
  1. OSMOPREP [Suspect]
     Indication: BOWEL PREPARATION
     Dosage: PO
     Route: 048
     Dates: start: 20070730, end: 20070731
  2. OSMOPREP [Suspect]
     Indication: BOWEL PREPARATION
     Dosage: PO
     Route: 048
     Dates: start: 20070731, end: 20070731

REACTIONS (8)
  - ABDOMINAL PAIN [None]
  - DEHYDRATION [None]
  - DIABETES MELLITUS [None]
  - DIARRHOEA [None]
  - DIZZINESS [None]
  - NAUSEA [None]
  - POLLAKIURIA [None]
  - THIRST [None]
